FAERS Safety Report 10058026 (Version 1)
Quarter: 2014Q2

REPORT INFORMATION
  Report Type: Report from Study
  Country: TW (occurrence: TW)
  Receive Date: 20140404
  Receipt Date: 20140404
  Transmission Date: 20141212
  Serious: No
  Sender: FDA-Public Use
  Company Number: TW-JNJFOC-20140115952

PATIENT
  Age: 37 Year
  Sex: Male

DRUGS (1)
  1. USTEKINUMAB [Suspect]
     Indication: PSORIASIS
     Route: 065
     Dates: start: 20121030, end: 20121030

REACTIONS (1)
  - Hepatitis B [Recovered/Resolved]
